FAERS Safety Report 9169882 (Version 2)
Quarter: 2013Q2

REPORT INFORMATION
  Report Type: Spontaneous
  Country: US (occurrence: US)
  Receive Date: 20130319
  Receipt Date: 20130422
  Transmission Date: 20140414
  Serious: Yes (Other)
  Sender: FDA-Public Use
  Company Number: US-009507513-1303USA006584

PATIENT
  Age: 29 Year
  Sex: Female

DRUGS (4)
  1. DULERA [Suspect]
     Indication: ASTHMA
     Dosage: 200MICROGRAM/5MICROGRAM
     Route: 055
     Dates: start: 20121019
  2. DULERA [Suspect]
     Indication: RHINITIS SEASONAL
  3. SINGULAIR [Suspect]
     Indication: ASTHMA
     Dosage: 10 MG, QD
     Route: 048
     Dates: start: 20121019
  4. SINGULAIR [Suspect]
     Indication: RHINITIS SEASONAL

REACTIONS (1)
  - Convulsion [Unknown]
